FAERS Safety Report 7136140-6 (Version None)
Quarter: 2010Q4

REPORT INFORMATION
  Report Type: 
  Country: None (occurrence: None)
  Receive Date: 20101205
  Receipt Date: 20101124
  Transmission Date: 20110411
  Serious: Yes (Hospitalization)
  Sender: FDA-Public Use
  Company Number: GB-JNJFOC-20101104128

PATIENT
  Sex: Female
  Weight: 98 kg

DRUGS (11)
  1. USTEKINUMAB [Suspect]
     Indication: PSORIASIS
     Route: 058
  2. BENDROFLUAZIDE [Concomitant]
     Indication: ILL-DEFINED DISORDER
     Route: 065
  3. CO-CODAMOL [Concomitant]
     Indication: ILL-DEFINED DISORDER
     Route: 065
  4. IRBESARTAN [Concomitant]
     Indication: ILL-DEFINED DISORDER
     Route: 065
  5. PHENERGAN [Concomitant]
     Indication: ILL-DEFINED DISORDER
     Route: 065
  6. DICLOFENAC [Concomitant]
     Indication: PAIN
     Route: 065
  7. SENNA [Concomitant]
     Indication: CONSTIPATION
     Route: 065
  8. PARACETAMOL [Concomitant]
     Indication: PAIN
     Route: 065
  9. GABAPENTIN [Concomitant]
     Indication: PAIN
     Route: 065
  10. LACTULOSE [Concomitant]
     Indication: CONSTIPATION
     Route: 065
  11. TRAMADOL HCL [Concomitant]
     Indication: PAIN

REACTIONS (6)
  - DACTYLITIS [None]
  - DRUG INEFFECTIVE [None]
  - PSORIASIS [None]
  - PSORIATIC ARTHROPATHY [None]
  - PUSTULAR PSORIASIS [None]
  - SYNOVITIS [None]
